FAERS Safety Report 17890456 (Version 1)
Quarter: 2020Q2

REPORT INFORMATION
  Report Type: Spontaneous
  Country: US (occurrence: US)
  Receive Date: 20200612
  Receipt Date: 20200612
  Transmission Date: 20200714
  Serious: No
  Sender: FDA-Public Use
  Company Number: US-PERRIGO-19US010201

PATIENT
  Age: 74 Year
  Sex: Female
  Weight: 56.24 kg

DRUGS (3)
  1. AZELASTINE HYDROCHLORIDE. [Suspect]
     Active Substance: AZELASTINE HYDROCHLORIDE
     Indication: UPPER-AIRWAY COUGH SYNDROME
  2. AZELASTINE HYDROCHLORIDE. [Suspect]
     Active Substance: AZELASTINE HYDROCHLORIDE
     Indication: EAR PAIN
     Dosage: 2 SPRAYS AT BEDIME, AS NEEDED
     Route: 045
     Dates: start: 201906, end: 201906
  3. AZELASTINE HYDROCHLORIDE. [Suspect]
     Active Substance: AZELASTINE HYDROCHLORIDE
     Indication: SINUS DISORDER

REACTIONS (1)
  - Drug effective for unapproved indication [Unknown]

NARRATIVE: CASE EVENT DATE: 201906
